FAERS Safety Report 20390843 (Version 2)
Quarter: 2022Q1

REPORT INFORMATION
  Report Type: Spontaneous
  Country: FR (occurrence: FR)
  Receive Date: 20220128
  Receipt Date: 20220214
  Transmission Date: 20220424
  Serious: Yes (Other)
  Sender: FDA-Public Use
  Company Number: FR-GSKCCFEMEA-Case-01404378_AE-54082

PATIENT
  Age: 18 Year
  Sex: Female

DRUGS (1)
  1. VENTOLIN HFA [Suspect]
     Active Substance: ALBUTEROL SULFATE
     Indication: Product used for unknown indication
     Dosage: 100 UG

REACTIONS (6)
  - Foreign body in throat [Unknown]
  - Emergency care examination [Unknown]
  - Dyspnoea [Unknown]
  - Mouth haemorrhage [Unknown]
  - Respiratory tract irritation [Unknown]
  - Product complaint [Unknown]

NARRATIVE: CASE EVENT DATE: 20220123
